FAERS Safety Report 6939468-5 (Version None)
Quarter: 2010Q3

REPORT INFORMATION
  Report Type: 
  Country: None (occurrence: None)
  Receive Date: 20100819
  Receipt Date: 20100804
  Transmission Date: 20110219
  Serious: Yes (Other)
  Sender: FDA-Public Use
  Company Number: JHP201000234

PATIENT
  Age: 57 Year
  Sex: Male

DRUGS (14)
  1. DANTRIUM [Suspect]
     Dosage: 75 MG, DAILY, ORAL
     Route: 048
  2. FLUID REPLACEMENT [Concomitant]
  3. MEROPENEM [Concomitant]
  4. LEVOFLOXACIN [Concomitant]
  5. CEFOTIAM (CEFOTIAM) [Concomitant]
  6. MINOCYCLINE (MINOCYCLINE HYDROCHLORIDE) [Concomitant]
  7. LINEZOLID [Concomitant]
  8. DOPAMINE HCL [Concomitant]
  9. GABEXATE (GABEXATE) [Concomitant]
  10. LIDOCAINE HCL [Concomitant]
  11. MIDAZOLAM HYDROCHLORIDE [Concomitant]
  12. SIVELESTAT (SIVELESTAT) [Concomitant]
  13. PIPERACILLIN W/TAZOBACTAM (PIPERACILLIN, TAZOBACTAM) [Concomitant]
  14. CLINDAMYCIN (CLINDAMYCIN PHOSPHATE) [Concomitant]

REACTIONS (15)
  - BACTERIAL INFECTION [None]
  - CEREBRAL INFARCTION [None]
  - DEPRESSED LEVEL OF CONSCIOUSNESS [None]
  - HYPONATRAEMIA [None]
  - HYPOTENSION [None]
  - LIVER DISORDER [None]
  - NEUROLEPTIC MALIGNANT SYNDROME [None]
  - PLATELET COUNT DECREASED [None]
  - PNEUMONIA [None]
  - PNEUMONIA PRIMARY ATYPICAL [None]
  - PRODUCT DEPOSIT [None]
  - SPUTUM CULTURE POSITIVE [None]
  - STAPHYLOCOCCAL INFECTION [None]
  - VENTRICULAR EXTRASYSTOLES [None]
  - VENTRICULAR HYPOKINESIA [None]
